FAERS Safety Report 10622220 (Version 1)
Quarter: 2014Q4

REPORT INFORMATION
  Report Type: Spontaneous
  Country: CN (occurrence: CN)
  Receive Date: 20141203
  Receipt Date: 20141203
  Transmission Date: 20150529
  Serious: Yes (Other)
  Sender: FDA-Public Use
  Company Number: CN-PFIZER INC-2014327697

PATIENT
  Age: 45 Year
  Sex: Female
  Weight: 67 kg

DRUGS (5)
  1. 5-FLUOROURACIL ^BIOSYN^ [Suspect]
     Active Substance: FLUOROURACIL
     Indication: BREAST CANCER
     Dosage: 850 MG, 1X/DAY
     Route: 041
     Dates: start: 20140617, end: 20140617
  2. CYCLOPHOSPHAMIDE. [Suspect]
     Active Substance: CYCLOPHOSPHAMIDE
     Indication: BREAST CANCER
     Dosage: 850 MG, 1X/DAY
     Route: 041
     Dates: start: 20140617, end: 20140617
  3. CALCIUM FOLINATE [Concomitant]
     Active Substance: LEUCOVORIN CALCIUM
  4. PHARMORUBICIN [Suspect]
     Active Substance: EPIRUBICIN
     Indication: BREAST CANCER
     Dosage: 140 MG, 1X/DAY
     Route: 041
     Dates: start: 20140617, end: 20140617
  5. OMEPRAZOLE. [Concomitant]
     Active Substance: OMEPRAZOLE

REACTIONS (1)
  - Infusion related reaction [Recovered/Resolved]

NARRATIVE: CASE EVENT DATE: 20140617
